FAERS Safety Report 23524342 (Version 1)
Quarter: 2024Q1

REPORT INFORMATION
  Report Type: Spontaneous
  Country: TR (occurrence: TR)
  Receive Date: 20240214
  Receipt Date: 20240214
  Transmission Date: 20240410
  Serious: Yes (Other)
  Sender: FDA-Public Use
  Company Number: TR-JNJFOC-20240227514

PATIENT
  Age: 19 Year
  Sex: Male

DRUGS (3)
  1. SPRAVATO [Suspect]
     Active Substance: ESKETAMINE
     Indication: Depression
     Dosage: ADMINISTERED 4 DOSES OF SPRAVATO IN SEPTEMBER-OCTOBER
     Dates: start: 202309, end: 202310
  2. SPRAVATO [Suspect]
     Active Substance: ESKETAMINE
     Dates: start: 202312, end: 202401
  3. KETAMIN [KETAMINE] [Concomitant]

REACTIONS (2)
  - Suicidal ideation [Recovering/Resolving]
  - Product dose omission issue [Unknown]

NARRATIVE: CASE EVENT DATE: 20231101
